FAERS Safety Report 9331746 (Version 6)
Quarter: 2014Q1

REPORT INFORMATION
  Report Type: Report from Study
  Country: FR (occurrence: FR)
  Receive Date: 20130605
  Receipt Date: 20140110
  Transmission Date: 20141002
  Serious: Yes (Life-Threatening, Hospitalization)
  Sender: FDA-Public Use
  Company Number: FR-TEVA-409914USA

PATIENT
  Age: 69 Year
  Sex: Male
  Weight: 68 kg

DRUGS (6)
  1. BENDAMUSTINE HCL [Suspect]
     Indication: NON-HODGKIN^S LYMPHOMA
     Dosage: UNKNOWN/D
     Route: 042
     Dates: start: 20120925
  2. BENDAMUSTINE HCL [Suspect]
     Dosage: UNKNOWN/D
     Route: 042
     Dates: start: 20130312
  3. OBINUTUZUMAB [Suspect]
     Indication: NON-HODGKIN^S LYMPHOMA
     Route: 042
     Dates: start: 20120925
  4. OBINUTUZUMAB [Suspect]
     Route: 042
     Dates: start: 20130904
  5. DETENSIEL [Concomitant]
  6. CELLUVISC [Concomitant]
     Dates: start: 20130211

REACTIONS (7)
  - Lung disorder [Recovered/Resolved]
  - Atrial fibrillation [Recovered/Resolved]
  - Muscle haemorrhage [Not Recovered/Not Resolved]
  - Arrhythmia [Recovered/Resolved]
  - Neutropenic infection [Recovered/Resolved]
  - Pyrexia [Recovered/Resolved]
  - Lymphoma [Not Recovered/Not Resolved]
